FAERS Safety Report 8909877 (Version 1)
Quarter: 2012Q4

REPORT INFORMATION
  Report Type: 
  Country: BE (occurrence: BE)
  Receive Date: 20121115
  Receipt Date: 20121115
  Transmission Date: 20130627
  Serious: Yes (Other)
  Sender: FDA-Public Use
  Company Number: BE-PFIZER INC-2012281968

PATIENT
  Sex: Male

DRUGS (1)
  1. FLUROBLASTINE [Suspect]
     Dosage: UNK

REACTIONS (1)
  - Polyneuropathy [Unknown]
